FAERS Safety Report 9109170 (Version 1)
Quarter: 2013Q1

REPORT INFORMATION
  Report Type: Spontaneous
  Country: JP (occurrence: JP)
  Receive Date: 20130222
  Receipt Date: 20130222
  Transmission Date: 20140127
  Serious: Yes (Life-Threatening)
  Sender: FDA-Public Use
  Company Number: JP-ABBOTT-13P-087-1053964-00

PATIENT
  Age: 70 Year
  Sex: Female

DRUGS (3)
  1. CLARITH [Suspect]
     Indication: PRODUCT USED FOR UNKNOWN INDICATION
     Route: 048
  2. METHOTREXATE [Concomitant]
     Indication: RHEUMATOID ARTHRITIS
  3. PROGRAF [Concomitant]
     Indication: RHEUMATOID ARTHRITIS

REACTIONS (1)
  - Pneumocystis jirovecii pneumonia [Recovering/Resolving]
